FAERS Safety Report 5030068-3 (Version None)
Quarter: 2006Q2

REPORT INFORMATION
  Report Type: 
  Country: None (occurrence: None)
  Receive Date: 20060614
  Receipt Date: 20060530
  Transmission Date: 20061013
  Serious: Yes (Congenital Anomaly, Other)
  Sender: FDA-Public Use
  Company Number: CA200606000417

PATIENT

DRUGS (2)
  1. ZYPREXA [Suspect]
     Dosage: TRANSPLACENTAL
     Route: 064
  2. RHOVANE (ZOPICLONE) [Concomitant]

REACTIONS (2)
  - DRUG EXPOSURE DURING PREGNANCY [None]
  - VENTRICULAR SEPTAL DEFECT [None]
